FAERS Safety Report 5755153-X (Version None)
Quarter: 2008Q2

REPORT INFORMATION
  Report Type: 
  Country: None (occurrence: None)
  Receive Date: 20080529
  Receipt Date: 20080529
  Transmission Date: 20081010
  Serious: Yes (Hospitalization)
  Sender: FDA-Public Use
  Company Number: None

PATIENT
  Age: 75 Year
  Sex: Female

DRUGS (13)
  1. LIPITOR [Suspect]
     Dosage: 20 MG PO PTA
     Route: 048
  2. ASPIRIN [Concomitant]
  3. POTASSIUM CHLORIDE [Concomitant]
  4. PROTONIX [Concomitant]
  5. ELAVIL [Concomitant]
  6. LASIX [Concomitant]
  7. FA [Concomitant]
  8. COREG [Concomitant]
  9. LANOXIN [Concomitant]
  10. CLONIDINE [Concomitant]
  11. GLIPIZIDE [Concomitant]
  12. PLAVIX [Concomitant]
  13. DARVOCET [Concomitant]

REACTIONS (2)
  - RENAL FAILURE ACUTE [None]
  - RHABDOMYOLYSIS [None]
